FAERS Safety Report 4444164-2 (Version None)
Quarter: 2004Q3

REPORT INFORMATION
  Report Type: 
  Country: None (occurrence: None)
  Receive Date: 20040902
  Receipt Date: 20040816
  Transmission Date: 20050211
  Serious: Yes (Hospitalization, Other)
  Sender: FDA-Public Use
  Company Number: USA040670874

PATIENT
  Age: 15 Year
  Sex: Male
  Weight: 76 kg

DRUGS (4)
  1. HUMATROPE [Suspect]
     Indication: HYPOPITUITARISM
     Dosage: 4 MG DAY
     Dates: start: 19950401, end: 20031001
  2. HUMATROPE [Suspect]
     Indication: MEDULLOBLASTOMA
     Dosage: 4 MG DAY
     Dates: start: 19950401, end: 20031001
  3. SYNTHROID [Concomitant]
  4. LUPRON DEPOT (LEUPRORELIN) [Concomitant]

REACTIONS (10)
  - ALOPECIA [None]
  - BALANCE DISORDER [None]
  - CEREBRAL VENTRICLE DILATATION [None]
  - DIPLOPIA [None]
  - GAIT DISTURBANCE [None]
  - GLIOBLASTOMA MULTIFORME [None]
  - HEADACHE [None]
  - HYDROCEPHALUS [None]
  - PAPILLOEDEMA [None]
  - SPEECH DISORDER [None]
